FAERS Safety Report 7208129-X (Version None)
Quarter: 2010Q4

REPORT INFORMATION
  Report Type: 
  Country: None (occurrence: None)
  Receive Date: 20101222
  Receipt Date: 20100803
  Transmission Date: 20110411
  Serious: Yes (Other)
  Sender: FDA-Public Use
  Company Number: IMP_05050_2010

PATIENT
  Sex: Female
  Weight: 58.0604 kg

DRUGS (5)
  1. BUPROPION HCL [Suspect]
     Indication: EMOTIONAL DISORDER
     Dosage: (200 MG BID ORAL)
     Route: 048
     Dates: start: 20100421, end: 20100514
  2. BUPROPION HCL [Suspect]
     Indication: FATIGUE
     Dosage: (200 MG BID ORAL)
     Route: 048
     Dates: start: 20100421, end: 20100514
  3. BUPROPION HCL [Suspect]
     Indication: SEASONAL AFFECTIVE DISORDER
     Dosage: (200 MG BID ORAL)
     Route: 048
     Dates: start: 20100421, end: 20100514
  4. BENICAR [Concomitant]
  5. SINGULAIR [Concomitant]

REACTIONS (7)
  - ANXIOUS PARENT [None]
  - DEPRESSION [None]
  - DRUG INEFFECTIVE [None]
  - FATIGUE [None]
  - PRODUCT MEASURED POTENCY ISSUE [None]
  - PRODUCT QUALITY ISSUE [None]
  - PRODUCT SUBSTITUTION ISSUE [None]
